FAERS Safety Report 21934251 (Version 3)
Quarter: 2023Q1

REPORT INFORMATION
  Report Type: Spontaneous
  Country: US (occurrence: US)
  Receive Date: 20230201
  Receipt Date: 20230330
  Transmission Date: 20230417
  Serious: Yes (Other)
  Sender: FDA-Public Use
  Company Number: US-PROCTER_AND_GAMBLE-PH23000819

PATIENT
  Sex: Female

DRUGS (1)
  1. ZZZQUIL NIGHTTIME SLEEP-AID [Suspect]
     Active Substance: DIPHENHYDRAMINE HYDROCHLORIDE
     Indication: Insomnia
     Dosage: TOOK 4 WITHIN 2 WEEKS (TRIED VICKS ZZZQUIL A FEW TIMES)
     Route: 048
     Dates: start: 202301

REACTIONS (7)
  - Coma [Unknown]
  - Epilepsy [Unknown]
  - Condition aggravated [Unknown]
  - Decreased appetite [Unknown]
  - Seizure [Unknown]
  - Hypertension [Unknown]
  - Nervousness [Unknown]

NARRATIVE: CASE EVENT DATE: 20230101
